FAERS Safety Report 5110345-8 (Version None)
Quarter: 2006Q3

REPORT INFORMATION
  Report Type: 
  Country: None (occurrence: None)
  Receive Date: 20060915
  Receipt Date: 20060912
  Transmission Date: 20061208
  Serious: Yes (Life-Threatening, Hospitalization, Other)
  Sender: FDA-Public Use
  Company Number: HQWYE600112SEP06

PATIENT
  Age: 32 Year
  Sex: Male

DRUGS (2)
  1. RAPAMUNE [Suspect]
     Indication: PROPHYLAXIS AGAINST TRANSPLANT REJECTION
     Dosage: 1 MG 1X PER 1 DAY ORAL; SEE IMAGE
     Route: 048
     Dates: start: 20060707, end: 20060826
  2. RAPAMUNE [Suspect]
     Indication: PROPHYLAXIS AGAINST TRANSPLANT REJECTION
     Dosage: 1 MG 1X PER 1 DAY ORAL; SEE IMAGE
     Route: 048
     Dates: start: 20060827

REACTIONS (6)
  - BLOOD CREATINE INCREASED [None]
  - DIALYSIS [None]
  - HAEMOTHORAX [None]
  - PLATELET COUNT DECREASED [None]
  - PLEURAL EFFUSION [None]
  - RESPIRATORY DISORDER [None]
